FAERS Safety Report 14261285 (Version 2)
Quarter: 2018Q1

REPORT INFORMATION
  Report Type: Spontaneous
  Country: US (occurrence: US)
  Receive Date: 20171208
  Receipt Date: 20180201
  Transmission Date: 20180508
  Serious: Yes (Other)
  Sender: FDA-Public Use
  Company Number: US-009507513-1711USA013086

PATIENT
  Age: 62 Year
  Sex: Female

DRUGS (1)
  1. BELSOMRA [Suspect]
     Active Substance: SUVOREXANT
     Indication: INSOMNIA
     Dosage: ONE TABLET ONCE PER NIGHT
     Route: 048
     Dates: start: 20171112, end: 20171115

REACTIONS (6)
  - Fatigue [Not Recovered/Not Resolved]
  - Nightmare [Recovered/Resolved]
  - Coma [Unknown]
  - Drug ineffective [Unknown]
  - Restlessness [Unknown]
  - Anxiety [Recovered/Resolved]

NARRATIVE: CASE EVENT DATE: 201711
